FAERS Safety Report 10908820 (Version 1)
Quarter: 2015Q1

REPORT INFORMATION
  Report Type: Spontaneous
  Country: US (occurrence: None)
  Receive Date: 20150310
  Receipt Date: 20150310
  Transmission Date: 20150721
  Serious: Yes (Hospitalization)
  Sender: FDA-Public Use
  Company Number: None

PATIENT
  Age: 78 Year
  Sex: Male
  Weight: 124.74 kg

DRUGS (18)
  1. TRAMADOL [Concomitant]
     Active Substance: TRAMADOL
  2. LOVENOX [Concomitant]
     Active Substance: ENOXAPARIN SODIUM
  3. LEVOTHYROXINE [Concomitant]
     Active Substance: LEVOTHYROXINE
  4. LISINOPRIL. [Concomitant]
     Active Substance: LISINOPRIL
  5. CYANOCOBALAMIN (VITAMIN B12) [Concomitant]
  6. ULTRAM ER [Concomitant]
     Active Substance: TRAMADOL HYDROCHLORIDE
  7. CODINE [Concomitant]
     Active Substance: CODEINE
  8. ASCORBIC ACID (VITAMIN C) [Concomitant]
     Active Substance: ASCORBIC ACID
  9. CARVEDILOL (COREG) [Concomitant]
  10. PLAVIX [Concomitant]
     Active Substance: CLOPIDOGREL BISULFATE
  11. DESOXIMETASONE TOPICAL [Concomitant]
  12. HYDROCODONE BITARTRATE AND ACETAMINOPHEN [Suspect]
     Active Substance: ACETAMINOPHEN\HYDROCODONE BITARTRATE
     Indication: PROCEDURAL PAIN
     Route: 048
     Dates: start: 20150223, end: 20150226
  13. CODINE SULFATE [Concomitant]
  14. ASPIRIN. [Concomitant]
     Active Substance: ASPIRIN
  15. FAMOTIDINE. [Concomitant]
     Active Substance: FAMOTIDINE
  16. ATORVASTATIN (LIPTOR) [Concomitant]
  17. FUROSEMIDE. [Concomitant]
     Active Substance: FUROSEMIDE
  18. DOCUSATE (COLACE) [Concomitant]

REACTIONS (6)
  - Mood altered [None]
  - Amnesia [None]
  - Nightmare [None]
  - Hallucination [None]
  - Thirst [None]
  - Aggression [None]

NARRATIVE: CASE EVENT DATE: 20150225
